FAERS Safety Report 5492254-8 (Version None)
Quarter: 2007Q4

REPORT INFORMATION
  Report Type: 
  Country: None (occurrence: None)
  Receive Date: 20071022
  Receipt Date: 20071012
  Transmission Date: 20080405
  Serious: Yes (Other)
  Sender: FDA-Public Use
  Company Number: GB-ASTRAZENECA-2007GB02102

PATIENT
  Sex: Male

DRUGS (4)
  1. SEROQUEL [Suspect]
     Indication: SCHIZOPHRENIA
     Dosage: 250 MG IN THE MORNING 500 MG AT NIGHT
     Route: 048
  2. ARIPIPRAZOLE [Suspect]
  3. ARIPIPRAZOLE [Suspect]
     Dosage: DOSE GRADUALLY INCREASED FROM 10 MG TO 30 MG
  4. ARIPIPRAZOLE [Suspect]

REACTIONS (1)
  - ELECTROCARDIOGRAM QT PROLONGED [None]
